FAERS Safety Report 5719886-3 (Version None)
Quarter: 2008Q2

REPORT INFORMATION
  Report Type: 
  Country: None (occurrence: None)
  Receive Date: 20080428
  Receipt Date: 20070622
  Transmission Date: 20081010
  Serious: No
  Sender: FDA-Public Use
  Company Number: A0659683A

PATIENT
  Age: 18 Year
  Sex: Female

DRUGS (2)
  1. ZOFRAN [Suspect]
     Indication: NAUSEA
     Route: 048
     Dates: start: 20010101, end: 20010101
  2. NO CONCURRENT MEDICATION [Concomitant]

REACTIONS (3)
  - DELIVERY [None]
  - OFF LABEL USE [None]
  - THERAPEUTIC RESPONSE UNEXPECTED [None]
